FAERS Safety Report 6414508-0 (Version None)
Quarter: 2009Q4

REPORT INFORMATION
  Report Type: 
  Country: None (occurrence: None)
  Receive Date: 20091026
  Receipt Date: 20091015
  Transmission Date: 20100525
  Serious: Yes (Hospitalization)
  Sender: FDA-Public Use
  Company Number: JP-WYE-G04667609

PATIENT
  Age: 90 Year
  Sex: Female

DRUGS (4)
  1. LANSOPRAZOLE [Suspect]
     Dosage: UNKNOWN
     Route: 048
  2. LANSOPRAZOLE [Suspect]
     Dosage: UNKNOWN
     Route: 048
  3. AMLODIPINE [Concomitant]
     Dosage: UNKNOWN
     Route: 048
  4. AMLODIPINE [Concomitant]
     Dosage: UNKNOWN
     Route: 048

REACTIONS (4)
  - ACTIVATED PARTIAL THROMBOPLASTIN TIME PROLONGED [None]
  - CATHETER SITE HAEMORRHAGE [None]
  - HAEMORRHAGE SUBCUTANEOUS [None]
  - PROTHROMBIN TIME PROLONGED [None]
